FAERS Safety Report 8016386-5 (Version None)
Quarter: 2011Q4

REPORT INFORMATION
  Report Type: 
  Country: None (occurrence: None)
  Receive Date: 20111230
  Receipt Date: 20111219
  Transmission Date: 20120403
  Serious: Yes (Hospitalization)
  Sender: FDA-Public Use
  Company Number: US-ROCHE-GNE318960

PATIENT
  Sex: Female
  Weight: 70.37 kg

DRUGS (10)
  1. STADOL [Concomitant]
     Indication: LABOUR PAIN
  2. PROAIR HFA [Concomitant]
     Indication: ASTHMA
     Dosage: UNK
  3. PERCOCET [Concomitant]
     Indication: PAIN
  4. PENICILLIN G [Concomitant]
     Indication: STREPTOCOCCAL INFECTION
  5. ADVAIR DISKUS 100/50 [Concomitant]
     Indication: ASTHMA
     Dosage: UNK
  6. OMALIZUMAB [Suspect]
     Indication: ASTHMA
     Dosage: 150 MG, Q4W
     Route: 058
     Dates: start: 20090831
  7. VITAMIN AND MINERAL PRENATAL SUPPLEMENT W/ FOLIC ACID CAP [Concomitant]
     Indication: PREGNANCY
     Dosage: UNK
  8. VENTOLIN DS [Concomitant]
     Indication: ASTHMA
  9. MAGNESIUM SULFATE [Concomitant]
     Indication: HYPERTENSION
  10. MOTRIN [Concomitant]
     Indication: PAIN

REACTIONS (3)
  - MATERNAL EXPOSURE DURING PREGNANCY [None]
  - NORMAL NEWBORN [None]
  - ARRESTED LABOUR [None]
